FAERS Safety Report 12200703 (Version 3)
Quarter: 2016Q2

REPORT INFORMATION
  Report Type: Spontaneous
  Country: None (occurrence: US)
  Receive Date: 20160322
  Receipt Date: 20160607
  Transmission Date: 20160815
  Serious: No
  Sender: FDA-Public Use
  Company Number: US-RARE DISEASE THERAPEUTICS, INC.-1049427

PATIENT
  Age: 21 Year
  Sex: Female
  Weight: 66.68 kg

DRUGS (5)
  1. OXCARBAZEPINE. [Concomitant]
     Active Substance: OXCARBAZEPINE
  2. CYSTADANE [Suspect]
     Active Substance: BETAINE
     Indication: VITAMIN B12 DEFICIENCY
     Route: 048
     Dates: start: 20140711
  3. FOLIC ACID. [Concomitant]
     Active Substance: FOLIC ACID
  4. TRAZODONE [Concomitant]
     Active Substance: TRAZODONE HYDROCHLORIDE
  5. VITAMIN C [Concomitant]
     Active Substance: ASCORBIC ACID

REACTIONS (2)
  - Overdose [Not Recovered/Not Resolved]
  - Dyspepsia [Not Recovered/Not Resolved]

NARRATIVE: CASE EVENT DATE: 20160301
